FAERS Safety Report 20392724 (Version 1)
Quarter: 2022Q1

REPORT INFORMATION
  Report Type: Spontaneous
  Country: US (occurrence: US)
  Receive Date: 20220128
  Receipt Date: 20220128
  Transmission Date: 20220423
  Serious: No
  Sender: FDA-Public Use
  Company Number: US-ELI_LILLY_AND_COMPANY-US202201007075

PATIENT
  Sex: Female

DRUGS (4)
  1. BASAGLAR [Suspect]
     Active Substance: INSULIN GLARGINE
     Indication: Type 2 diabetes mellitus
     Dosage: 20 U, DAILY
     Route: 065
     Dates: start: 202110
  2. GLIMEPIRIDE [Suspect]
     Active Substance: GLIMEPIRIDE
     Indication: Hypertension
     Dosage: UNK UNK, UNKNOWN
     Route: 065
  3. LISINOPRIL [Concomitant]
     Active Substance: LISINOPRIL
     Indication: Hypertension
  4. METFORMIN [Concomitant]
     Active Substance: METFORMIN HYDROCHLORIDE

REACTIONS (9)
  - Weight increased [Unknown]
  - Burning sensation [Unknown]
  - Glycosylated haemoglobin increased [Unknown]
  - Discomfort [Unknown]
  - Dyspnoea [Recovering/Resolving]
  - Lethargy [Unknown]
  - Fatigue [Unknown]
  - Generalised oedema [Unknown]
  - Fluid retention [Unknown]
